FAERS Safety Report 5554940-0 (Version None)
Quarter: 2007Q4

REPORT INFORMATION
  Report Type: 
  Country: None (occurrence: None)
  Receive Date: 20071213
  Receipt Date: 20071204
  Transmission Date: 20080405
  Serious: Yes (Disabling)
  Sender: FDA-Public Use
  Company Number: FR-ASTRAZENECA-2007CG01729

PATIENT
  Age: 55 Year
  Sex: Female

DRUGS (3)
  1. ARIMIDEX [Suspect]
     Indication: BREAST CANCER FEMALE
     Route: 048
     Dates: start: 20060401
  2. ENDOTELON [Concomitant]
     Indication: LYMPHOEDEMA
  3. MEPRONIZINE [Concomitant]
     Indication: INSOMNIA

REACTIONS (4)
  - ANGER [None]
  - ARTHRALGIA [None]
  - FATIGUE [None]
  - JOINT STIFFNESS [None]
